FAERS Safety Report 6539563-9 (Version None)
Quarter: 2010Q1

REPORT INFORMATION
  Report Type: 
  Country: None (occurrence: None)
  Receive Date: 20100115
  Receipt Date: 20100111
  Transmission Date: 20100710
  Serious: Yes (Other)
  Sender: FDA-Public Use
  Company Number: B0625647A

PATIENT
  Sex: Female

DRUGS (5)
  1. FLIXOTIDE [Suspect]
     Indication: CHRONIC OBSTRUCTIVE PULMONARY DISEASE
     Dosage: 5PUFF THREE TIMES PER DAY
     Route: 055
     Dates: start: 20030101
  2. ANTIBIOTICS [Concomitant]
  3. SEREVENT [Concomitant]
  4. SPIRIVA [Concomitant]
  5. AMINOPHYLLINE [Concomitant]
     Indication: CHRONIC OBSTRUCTIVE PULMONARY DISEASE

REACTIONS (2)
  - ASTHMA [None]
  - ILL-DEFINED DISORDER [None]
